FAERS Safety Report 5257771-4 (Version None)
Quarter: 2007Q1

REPORT INFORMATION
  Report Type: 
  Country: None (occurrence: None)
  Receive Date: 20070307
  Receipt Date: 20070228
  Transmission Date: 20070707
  Serious: Yes (Other)
  Sender: FDA-Public Use
  Company Number: US-JNJFOC-20060806719

PATIENT
  Sex: Female

DRUGS (1)
  1. ORTHO EVRA [Suspect]
     Indication: DRUG USE FOR UNKNOWN INDICATION
     Route: 062

REACTIONS (13)
  - BENIGN INTRACRANIAL HYPERTENSION [None]
  - CEREBRAL INFARCTION [None]
  - CEREBRAL VENOUS THROMBOSIS [None]
  - CEREBRAL VENTRICLE DILATATION [None]
  - ENCEPHALOMALACIA [None]
  - INTRACRANIAL PRESSURE INCREASED [None]
  - MIGRAINE [None]
  - NAUSEA [None]
  - PAPILLOEDEMA [None]
  - PAPILLOMA VIRAL INFECTION [None]
  - STRABISMUS [None]
  - VOMITING [None]
  - WEIGHT DECREASED [None]
